FAERS Safety Report 5641977-6 (Version None)
Quarter: 2008Q1

REPORT INFORMATION
  Report Type: 
  Country: None (occurrence: None)
  Receive Date: 20080227
  Receipt Date: 20080215
  Transmission Date: 20080703
  Serious: Yes (Hospitalization)
  Sender: FDA-Public Use
  Company Number: DE-PFIZER INC-2008009736

PATIENT
  Sex: Female

DRUGS (4)
  1. LYRICA [Suspect]
     Indication: NEURALGIA
     Dosage: DAILY DOSE:150MG
     Route: 048
     Dates: start: 20071220, end: 20080102
  2. NOVALGIN [Concomitant]
     Route: 048
     Dates: start: 20071219, end: 20071227
  3. EBRANTIL [Concomitant]
     Route: 048
     Dates: start: 20071219, end: 20080108
  4. NALOXONE/OXYCODONE [Concomitant]
     Route: 048
     Dates: start: 20071220, end: 20080103

REACTIONS (2)
  - DYSSTASIA [None]
  - TREMOR [None]
